FAERS Safety Report 7391924-4 (Version None)
Quarter: 2011Q2

REPORT INFORMATION
  Report Type: 
  Country: None (occurrence: None)
  Receive Date: 20110404
  Receipt Date: 20110325
  Transmission Date: 20111010
  Serious: Yes (Other)
  Sender: FDA-Public Use
  Company Number: US-PURDUE-USA-2011-0062511

PATIENT
  Sex: Female

DRUGS (2)
  1. SENOKOT [Suspect]
     Indication: CONSTIPATION
     Dosage: 4 TABLET, DAILY
     Route: 048
     Dates: start: 19860101
  2. SENOKOT [Suspect]
     Dosage: 1 TABLET, DAILY
     Route: 048

REACTIONS (3)
  - NEOPLASM MALIGNANT [None]
  - DIARRHOEA [None]
  - DRUG INEFFECTIVE [None]
